FAERS Safety Report 17402361 (Version 1)
Quarter: 2020Q1

REPORT INFORMATION
  Report Type: Spontaneous
  Country: US (occurrence: US)
  Receive Date: 20200210
  Receipt Date: 20200210
  Transmission Date: 20200409
  Serious: Yes (Hospitalization, Disabling)
  Sender: FDA-Public Use
  Company Number: None

PATIENT
  Age: 47 Year
  Sex: Female
  Weight: 76.5 kg

DRUGS (9)
  1. KLONOPIN [Suspect]
     Active Substance: CLONAZEPAM
     Indication: ANXIETY
     Dates: start: 20020101, end: 20170204
  2. BUSPAR [Concomitant]
     Active Substance: BUSPIRONE HYDROCHLORIDE
  3. ZANEX [Concomitant]
  4. LEVOTHYROXINE. [Concomitant]
     Active Substance: LEVOTHYROXINE
  5. 1 A DAY FOR WOMAN [Concomitant]
  6. FISH OIL [Concomitant]
     Active Substance: FISH OIL
  7. KLONOPIN [Suspect]
     Active Substance: CLONAZEPAM
     Indication: DEPRESSION
     Dates: start: 20020101, end: 20170204
  8. NEURONTIN [Concomitant]
     Active Substance: GABAPENTIN
  9. WELLBUTRIN [Concomitant]
     Active Substance: BUPROPION HYDROCHLORIDE

REACTIONS (22)
  - Vomiting [None]
  - Overdose [None]
  - Hyperthyroidism [None]
  - Depressive delusion [None]
  - Panic attack [None]
  - Torticollis [None]
  - Tic [None]
  - Bipolar disorder [None]
  - Depression [None]
  - Photophobia [None]
  - Borderline personality disorder [None]
  - Suicidal ideation [None]
  - Feeling abnormal [None]
  - Social avoidant behaviour [None]
  - Anxiety [None]
  - Speech disorder [None]
  - Therapy cessation [None]
  - Dyspnoea [None]
  - Lacrimation increased [None]
  - Eye disorder [None]
  - Muscle contracture [None]
  - Fear [None]

NARRATIVE: CASE EVENT DATE: 20170209
